FAERS Safety Report 10149980 (Version 1)
Quarter: 2014Q2

REPORT INFORMATION
  Report Type: Spontaneous
  Country: US (occurrence: None)
  Receive Date: 20140501
  Receipt Date: 20140501
  Transmission Date: 20141212
  Serious: Yes (Hospitalization)
  Sender: FDA-Public Use
  Company Number: None

PATIENT
  Age: 55 Year
  Sex: Male

DRUGS (10)
  1. WARFARIN [Suspect]
     Indication: ATRIAL FIBRILLATION
     Route: 048
     Dates: start: 20130911, end: 20130913
  2. PREDNISONE [Concomitant]
  3. TACROLIMUS [Concomitant]
  4. FUROSEMIDE [Concomitant]
  5. DILTIAZEM [Concomitant]
  6. LISINOPRIL [Concomitant]
  7. HEPARIN [Concomitant]
  8. DOCUSATE [Concomitant]
  9. MYCOPHENOLATE [Concomitant]
  10. OXYCODONE [Concomitant]

REACTIONS (4)
  - Pain in extremity [None]
  - Haematoma [None]
  - Swelling [None]
  - International normalised ratio increased [None]
